FAERS Safety Report 19161816 (Version 1)
Quarter: 2021Q2

REPORT INFORMATION
  Report Type: Spontaneous
  Country: US (occurrence: US)
  Receive Date: 20210421
  Receipt Date: 20210421
  Transmission Date: 20210717
  Serious: Yes (Other)
  Sender: FDA-Public Use
  Company Number: US-ABBVIE-21K-163-3860154-00

PATIENT
  Sex: Male

DRUGS (1)
  1. HUMIRA [Suspect]
     Active Substance: ADALIMUMAB
     Indication: CROHN^S DISEASE
     Route: 058

REACTIONS (5)
  - Disability [Unknown]
  - Weight increased [Unknown]
  - Autism spectrum disorder [Unknown]
  - Hypotonia [Unknown]
  - Muscular weakness [Unknown]

NARRATIVE: CASE EVENT DATE: 2021
